FAERS Safety Report 12496221 (Version 1)
Quarter: 2016Q2

REPORT INFORMATION
  Report Type: Spontaneous
  Country: JP (occurrence: JP)
  Receive Date: 20160624
  Receipt Date: 20160624
  Transmission Date: 20160815
  Serious: Yes (Other)
  Sender: FDA-Public Use
  Company Number: JP-PFIZER INC-2016310719

PATIENT
  Sex: Female

DRUGS (2)
  1. LEUCOVORIN. [Concomitant]
     Active Substance: LEUCOVORIN
     Dosage: ON WEDNESDAYS
  2. RHEUMATREX [Suspect]
     Active Substance: METHOTREXATE SODIUM
     Dosage: 6 MG, WEEKLY (TWO CAPSULES ON MONDAY MORNINGS AND ONE CAPSULE ON TUESDAY MORNINGS)
     Route: 048

REACTIONS (1)
  - Bile duct stone [Unknown]
